FAERS Safety Report 12822422 (Version 1)
Quarter: 2016Q4

REPORT INFORMATION
  Report Type: Spontaneous
  Country: US (occurrence: US)
  Receive Date: 20161006
  Receipt Date: 20161006
  Transmission Date: 20170207
  Serious: No
  Sender: FDA-Public Use
  Company Number: US-SHIONOGI, INC-2016000690

PATIENT
  Age: 65 Year
  Sex: Female

DRUGS (3)
  1. OSPHENA [Suspect]
     Active Substance: OSPEMIFENE
     Indication: DYSPAREUNIA
     Dosage: 60 MG, QD
     Route: 048
     Dates: start: 20160623
  2. ESTROVEN [Concomitant]
     Active Substance: DIETARY SUPPLEMENT
     Indication: PRODUCT USED FOR UNKNOWN INDICATION
     Dosage: UNK, QD
     Route: 048
  3. TEGRETOL [Concomitant]
     Active Substance: CARBAMAZEPINE
     Indication: ANXIETY
     Dosage: 75 MG, QD AT BED TIME
     Route: 048

REACTIONS (6)
  - Hot flush [Not Recovered/Not Resolved]
  - Fatigue [Not Recovered/Not Resolved]
  - Fibromyalgia [Not Recovered/Not Resolved]
  - Frequent bowel movements [Not Recovered/Not Resolved]
  - Vaginal discharge [Not Recovered/Not Resolved]
  - Yawning [Not Recovered/Not Resolved]

NARRATIVE: CASE EVENT DATE: 201606
